FAERS Safety Report 15403235 (Version 3)
Quarter: 2019Q1

REPORT INFORMATION
  Report Type: Spontaneous
  Country: US (occurrence: US)
  Receive Date: 20180919
  Receipt Date: 20190322
  Transmission Date: 20190417
  Serious: Yes (Hospitalization)
  Sender: FDA-Public Use
  Company Number: US-JNJFOC-20180904797

PATIENT
  Age: 46 Year
  Sex: Female
  Weight: 56.7 kg

DRUGS (1)
  1. XARELTO [Suspect]
     Active Substance: RIVAROXABAN
     Indication: PROTEIN S DEFICIENCY
     Route: 048
     Dates: start: 20140219, end: 20160905

REACTIONS (3)
  - Off label use [Unknown]
  - Gastric ulcer haemorrhage [Recovering/Resolving]
  - Product use in unapproved indication [Unknown]

NARRATIVE: CASE EVENT DATE: 20140219
